FAERS Safety Report 13831418 (Version 1)
Quarter: 2017Q3

REPORT INFORMATION
  Report Type: Spontaneous
  Country: NL (occurrence: NL)
  Receive Date: 20170803
  Receipt Date: 20170803
  Transmission Date: 20171127
  Serious: Yes (Hospitalization, Disabling, Other)
  Sender: FDA-Public Use
  Company Number: NL-PURDUE PHARMA-CAN-2017-0007818

PATIENT
  Age: 28 Year
  Sex: Female

DRUGS (1)
  1. NON-PMN METHYLPHENIDATE HYDROCHLORIDE [Suspect]
     Active Substance: METHYLPHENIDATE HYDROCHLORIDE
     Indication: ATTENTION DEFICIT/HYPERACTIVITY DISORDER
     Dosage: 10 MG, DAILY

REACTIONS (25)
  - Central nervous system lesion [Recovered/Resolved]
  - Incoherent [Unknown]
  - Hyperphagia [Unknown]
  - Bradykinesia [Unknown]
  - Hypomania [Recovered/Resolved]
  - Paranoia [Unknown]
  - Weight decreased [Unknown]
  - Memory impairment [Not Recovered/Not Resolved]
  - Bradyphrenia [Unknown]
  - Mental disorder [Unknown]
  - Psychotic disorder [Unknown]
  - Thinking abnormal [Unknown]
  - Decreased appetite [Unknown]
  - Hypothermia [Recovered/Resolved]
  - Hypercapnia [Recovered/Resolved]
  - Apraxia [Recovered/Resolved]
  - Visual impairment [Not Recovered/Not Resolved]
  - Confusional state [Unknown]
  - Disorientation [Unknown]
  - Speech disorder [Unknown]
  - Autonomic nervous system imbalance [Unknown]
  - Neuromyelitis optica spectrum disorder [Unknown]
  - Neglect of personal appearance [Unknown]
  - Hypersexuality [Unknown]
  - Overdose [Unknown]
